FAERS Safety Report 4544437-9 (Version None)
Quarter: 2005Q1

REPORT INFORMATION
  Report Type: 
  Country: None (occurrence: None)
  Receive Date: 20050104
  Receipt Date: 20050104
  Transmission Date: 20050727
  Serious: Yes (Death, Life-Threatening, Hospitalization, Disabling)
  Sender: FDA-Public Use
  Company Number: None

PATIENT
  Age: 81 Year
  Sex: Female
  Weight: 58.9676 kg

DRUGS (2)
  1. SEROQUEL [Suspect]
     Indication: DEMENTIA
     Dosage: UP TO 550 MG PER DAY
     Dates: start: 20030715, end: 20030827
  2. SEROQUEL [Suspect]
     Indication: DEMENTIA ALZHEIMER'S TYPE
     Dosage: UP TO 550 MG PER DAY
     Dates: start: 20030715, end: 20030827

REACTIONS (2)
  - GRAND MAL CONVULSION [None]
  - MEDICATION ERROR [None]
